FAERS Safety Report 10902618 (Version 1)
Quarter: 2015Q1

REPORT INFORMATION
  Report Type: Spontaneous
  Country: US (occurrence: US)
  Receive Date: 20150310
  Receipt Date: 20150310
  Transmission Date: 20150721
  Serious: Yes (Other)
  Sender: FDA-Public Use
  Company Number: ALCN2015US001541

PATIENT
  Sex: Male

DRUGS (2)
  1. TIMOLOL [Suspect]
     Active Substance: TIMOLOL
     Indication: PIGMENTARY GLAUCOMA
     Dosage: 1 GTT, QD
     Route: 047
     Dates: start: 20140801
  2. DIOVAN [Concomitant]
     Active Substance: VALSARTAN
     Indication: HYPERTENSION
     Dosage: UNK MG, UNK
     Route: 048

REACTIONS (5)
  - Headache [Unknown]
  - Heart rate increased [Unknown]
  - Muscle tightness [Unknown]
  - Hallucination [Unknown]
  - Anxiety [Unknown]
